FAERS Safety Report 14360180 (Version 2)
Quarter: 2018Q1

REPORT INFORMATION
  Report Type: Spontaneous
  Country: CZ (occurrence: CZ)
  Receive Date: 20180106
  Receipt Date: 20180206
  Transmission Date: 20180509
  Serious: Yes (Hospitalization, Other)
  Sender: FDA-Public Use
  Company Number: CZ-AUROBINDO-AUR-APL-2017-39997

PATIENT
  Age: 43 Year

DRUGS (3)
  1. METFORMIN [Suspect]
     Active Substance: METFORMIN HYDROCHLORIDE
     Dosage: 2000 UNITS NOS ()
     Route: 048
  2. METFORMIN [Suspect]
     Active Substance: METFORMIN HYDROCHLORIDE
     Indication: PRODUCT USED FOR UNKNOWN INDICATION
     Dosage: 2000 UNITS NOS
     Route: 048
  3. METFORMIN [Suspect]
     Active Substance: METFORMIN HYDROCHLORIDE
     Dosage: ()

REACTIONS (17)
  - Blood phosphorus increased [Unknown]
  - Lactic acidosis [Unknown]
  - Blood creatinine increased [Recovering/Resolving]
  - Base excess decreased [Unknown]
  - Gastrointestinal disorder [Unknown]
  - Hypovolaemia [Unknown]
  - Anion gap increased [Unknown]
  - Blood pH decreased [Unknown]
  - Blood bicarbonate decreased [Unknown]
  - PCO2 decreased [Unknown]
  - Toxicity to various agents [Unknown]
  - Hypocapnia [Unknown]
  - Blood potassium increased [Unknown]
  - Acute kidney injury [Recovering/Resolving]
  - Lactic acidosis [Unknown]
  - Blood chloride decreased [Unknown]
  - Creatinine renal clearance decreased [Recovering/Resolving]

NARRATIVE: CASE EVENT DATE: 2009
